FAERS Safety Report 5985294-3 (Version None)
Quarter: 2008Q4

REPORT INFORMATION
  Report Type: 
  Country: None (occurrence: None)
  Receive Date: 20081203
  Receipt Date: 20081126
  Transmission Date: 20090506
  Serious: Yes (Other)
  Sender: FDA-Public Use
  Company Number: SPV1-2008-02622

PATIENT
  Sex: Male
  Weight: 28 kg

DRUGS (1)
  1. ELAPRASE [Suspect]
     Indication: MUCOPOLYSACCHARIDOSIS II
     Dosage: 0.5MG/KG, 1X/WEEK, IV DRIP
     Route: 041
     Dates: start: 20080626

REACTIONS (7)
  - ARTHRALGIA [None]
  - BLOOD ALBUMIN DECREASED [None]
  - DEHYDRATION [None]
  - DYSPHAGIA [None]
  - HYPOPHAGIA [None]
  - MUSCLE ATROPHY [None]
  - WEIGHT DECREASED [None]
